FAERS Safety Report 10098068 (Version 1)
Quarter: 2014Q2

REPORT INFORMATION
  Report Type: Spontaneous
  Country: GB (occurrence: None)
  Receive Date: 20140421
  Receipt Date: 20140421
  Transmission Date: 20141212
  Serious: Yes (Other)
  Sender: FDA-Public Use
  Company Number: AUR-APL-2014-04581

PATIENT
  Age: 28 Year
  Sex: Female
  Weight: 60 kg

DRUGS (4)
  1. CITALOPRAM [Suspect]
     Indication: DEPRESSION
     Route: 048
     Dates: start: 20131128, end: 20140311
  2. CILEST (CILEST) [Concomitant]
  3. DIAZEPAM (DIAZEPAM) [Concomitant]
  4. FLUCLOXACILLIN (FLUCLOXACILLIN) [Concomitant]

REACTIONS (1)
  - Contusion [None]
